FAERS Safety Report 23952026 (Version 2)
Quarter: 2024Q2

REPORT INFORMATION
  Report Type: Spontaneous
  Country: US (occurrence: US)
  Receive Date: 20240607
  Receipt Date: 20240613
  Transmission Date: 20240716
  Serious: No
  Sender: FDA-Public Use
  Company Number: US-PFIZER INC-202400188258

PATIENT
  Age: 36 Year
  Sex: Male

DRUGS (2)
  1. PAXLOVID [Suspect]
     Active Substance: NIRMATRELVIR\RITONAVIR
     Indication: COVID-19 treatment
     Dosage: [NIRMATRELVIR 300 MG]/[RITONAVIR 100 MG]; 2X/DAY
     Route: 048
     Dates: start: 20240530, end: 20240604
  2. MENTHOL [Concomitant]
     Active Substance: MENTHOL
     Dosage: THROAT DROPS

REACTIONS (7)
  - Urine output fluctuation [Unknown]
  - Weight decreased [Unknown]
  - Dry mouth [Unknown]
  - Chromaturia [Unknown]
  - Anxiety [Unknown]
  - Cardiac disorder [Unknown]
  - Renal disorder [Unknown]

NARRATIVE: CASE EVENT DATE: 20240601
